FAERS Safety Report 24356940 (Version 2)
Quarter: 2024Q4

REPORT INFORMATION
  Report Type: Spontaneous
  Country: DE (occurrence: DE)
  Receive Date: 20240924
  Receipt Date: 20241009
  Transmission Date: 20250114
  Serious: Yes (Other)
  Sender: NOVARTIS
  Company Number: DE-002147023-NVSC2024DE188294

PATIENT
  Age: 59 Year
  Sex: Female

DRUGS (1)
  1. KESIMPTA [Suspect]
     Active Substance: OFATUMUMAB
     Indication: Product used for unknown indication
     Dosage: 20 MG
     Route: 065

REACTIONS (4)
  - Tumefactive multiple sclerosis [Unknown]
  - Gait disturbance [Unknown]
  - Pyrexia [Unknown]
  - Dizziness [Unknown]
